FAERS Safety Report 19947492 (Version 1)
Quarter: 2021Q4

REPORT INFORMATION
  Report Type: Spontaneous
  Country: IN (occurrence: IN)
  Receive Date: 20211012
  Receipt Date: 20211012
  Transmission Date: 20220304
  Serious: Yes (Hospitalization)
  Sender: FDA-Public Use
  Company Number: IN-MYLANLABS-2021M1072122

PATIENT
  Age: 20 Year
  Sex: Male

DRUGS (6)
  1. MIDAZOLAM [Suspect]
     Active Substance: MIDAZOLAM
     Indication: Seizure
     Dosage: AT MAXIMAL THERAPEUTIC DOSE
     Route: 065
  2. PHENYTOIN [Suspect]
     Active Substance: PHENYTOIN
     Indication: Seizure
     Dosage: AT MAXIMAL THERAPEUTIC DOSE
     Route: 065
  3. VALPROATE SODIUM [Suspect]
     Active Substance: VALPROATE SODIUM
     Indication: Seizure
     Dosage: AT MAXIMAL THERAPEUTIC DOSE
     Route: 065
  4. LEVETIRACETAM [Suspect]
     Active Substance: LEVETIRACETAM
     Indication: Seizure
     Dosage: AT MAXIMAL THERAPEUTIC DOSE
     Route: 065
  5. THIOPENTAL [Suspect]
     Active Substance: THIOPENTAL
     Indication: Seizure
     Dosage: AT MAXIMAL THERAPEUTIC DOSE
     Route: 065
  6. PROPOFOL [Suspect]
     Active Substance: PROPOFOL
     Indication: Seizure
     Dosage: AT MAXIMAL THERAPEUTIC DOSE
     Route: 065

REACTIONS (1)
  - Drug ineffective [Unknown]
